FAERS Safety Report 6129780-4 (Version None)
Quarter: 2009Q1

REPORT INFORMATION
  Report Type: 
  Country: None (occurrence: None)
  Receive Date: 20090324
  Receipt Date: 20090311
  Transmission Date: 20090719
  Serious: Yes (Death)
  Sender: FDA-Public Use
  Company Number: US-SANOFI-SYNTHELABO-A03200901099

PATIENT
  Sex: Female

DRUGS (10)
  1. PROTONIX [Suspect]
     Indication: DRUG USE FOR UNKNOWN INDICATION
     Dosage: UNK
     Route: 048
  2. NEXIUM [Suspect]
     Indication: DRUG USE FOR UNKNOWN INDICATION
     Dosage: UNK
     Route: 065
  3. MACROBID [Suspect]
     Indication: DRUG USE FOR UNKNOWN INDICATION
     Dosage: UNK
     Route: 065
  4. TOPAMAX [Suspect]
     Indication: INTERCOSTAL NEURALGIA
     Route: 048
  5. TOPAMAX [Suspect]
     Indication: TRIGEMINAL NEURALGIA
     Route: 048
  6. PROZAC [Suspect]
     Indication: DRUG USE FOR UNKNOWN INDICATION
     Dosage: UNK
     Route: 048
  7. PROMETHAZINE [Suspect]
     Indication: DRUG USE FOR UNKNOWN INDICATION
     Route: 048
  8. XANAX [Suspect]
     Indication: DRUG USE FOR UNKNOWN INDICATION
     Route: 048
  9. OPANA ER [Suspect]
     Indication: BACK PAIN
     Route: 048
     Dates: start: 20070619
  10. ZOLPIDEM NOS [Suspect]
     Indication: INSOMNIA
     Route: 048

REACTIONS (3)
  - ANGINA PECTORIS [None]
  - CARDIAC ARREST [None]
  - UNRESPONSIVE TO STIMULI [None]
